FAERS Safety Report 8801570 (Version 3)
Quarter: 2012Q4

REPORT INFORMATION
  Report Type: 
  Country: JP (occurrence: JP)
  Receive Date: 20120921
  Receipt Date: 20121005
  Transmission Date: 20130627
  Serious: Yes (Hospitalization)
  Sender: FDA-Public Use
  Company Number: JP-ABBOTT-12P-087-0979093-00

PATIENT
  Age: 44 Year
  Sex: Male

DRUGS (2)
  1. HUMIRA PRE-FILLED SYRINGE [Suspect]
     Indication: PSORIASIS
     Route: 058
     Dates: start: 20120314, end: 20120314
  2. HUMIRA PRE-FILLED SYRINGE [Suspect]
     Route: 058
     Dates: end: 201208

REACTIONS (1)
  - Haemorrhage subcutaneous [Recovered/Resolved]
